FAERS Safety Report 4545711-2 (Version None)
Quarter: 2005Q1

REPORT INFORMATION
  Report Type: 
  Country: None (occurrence: None)
  Receive Date: 20050103
  Receipt Date: 20050103
  Transmission Date: 20050727
  Serious: Yes (Hospitalization)
  Sender: FDA-Public Use
  Company Number: None

PATIENT
  Sex: Male
  Weight: 93 kg

DRUGS (1)
  1. LITHIUM 300 MG/ 60 MG [Suspect]
     Indication: BIPOLAR DISORDER
     Dosage: 300 MG PO QAM, 600 MG PO QPM
     Route: 048
     Dates: start: 19980101, end: 20030101

REACTIONS (3)
  - COORDINATION ABNORMAL [None]
  - LETHARGY [None]
  - TREMOR [None]
